FAERS Safety Report 8614666-3 (Version None)
Quarter: 2012Q3

REPORT INFORMATION
  Report Type: 
  Country: None (occurrence: None)
  Receive Date: 20120823
  Receipt Date: 20120815
  Transmission Date: 20120928
  Serious: Yes (Other)
  Sender: FDA-Public Use
  Company Number: US-US-EMD SERONO, INC.-7150820

PATIENT
  Sex: Female

DRUGS (5)
  1. REBIF [Suspect]
     Route: 058
     Dates: start: 20120801
  2. REBIF [Suspect]
     Route: 058
  3. ADVIL [Suspect]
     Indication: INFLUENZA LIKE ILLNESS
  4. REBIF [Suspect]
     Indication: MULTIPLE SCLEROSIS
     Route: 058
     Dates: start: 20120405
  5. HYDROCODONE [Concomitant]
     Indication: PREMEDICATION

REACTIONS (7)
  - ASTHENIA [None]
  - HAEMATEMESIS [None]
  - GASTRIC PERFORATION [None]
  - PAIN IN EXTREMITY [None]
  - CONSTIPATION [None]
  - BURNING SENSATION [None]
  - HYPOAESTHESIA [None]
